FAERS Safety Report 12209271 (Version 4)
Quarter: 2016Q2

REPORT INFORMATION
  Report Type: Spontaneous
  Country: GB (occurrence: GB)
  Receive Date: 20160324
  Receipt Date: 20160526
  Transmission Date: 20160815
  Serious: Yes (Hospitalization)
  Sender: FDA-Public Use
  Company Number: PHFR2016GB002645

PATIENT
  Sex: Female

DRUGS (3)
  1. NEORAL [Suspect]
     Active Substance: CYCLOSPORINE
     Dosage: 100 MG, (30)
     Route: 065
  2. NEORAL [Suspect]
     Active Substance: CYCLOSPORINE
     Dosage: 50 MG, (30)
     Route: 065
  3. NEORAL [Suspect]
     Active Substance: CYCLOSPORINE
     Indication: IMMUNOSUPPRESSION
     Dosage: 25 MG, (30)
     Route: 065

REACTIONS (4)
  - Fall [Unknown]
  - Malaise [Unknown]
  - Limb injury [Unknown]
  - Impaired healing [Unknown]
